FAERS Safety Report 7658201-5 (Version None)
Quarter: 2011Q3

REPORT INFORMATION
  Report Type: 
  Country: None (occurrence: None)
  Receive Date: 20110805
  Receipt Date: 20110729
  Transmission Date: 20111222
  Serious: Yes (Hospitalization)
  Sender: FDA-Public Use
  Company Number: IT-JNJFOC-20110705138

PATIENT
  Age: 63 Year
  Sex: Female

DRUGS (8)
  1. ATORVASTATIN CALCIUM [Concomitant]
     Indication: ILL-DEFINED DISORDER
     Route: 048
  2. SIMPONI [Suspect]
     Indication: RHEUMATOID ARTHRITIS
     Route: 058
     Dates: start: 20110727
  3. SIMPONI [Suspect]
     Route: 058
     Dates: start: 20101109, end: 20110627
  4. OMEPRAZOLE [Concomitant]
     Indication: ILL-DEFINED DISORDER
     Route: 048
  5. INDOXEN [Concomitant]
     Indication: ILL-DEFINED DISORDER
  6. UNIPRIL [Concomitant]
     Indication: ILL-DEFINED DISORDER
  7. METHOTREXATE [Concomitant]
     Indication: ILL-DEFINED DISORDER
     Route: 030
  8. MEDROL [Concomitant]
     Indication: ILL-DEFINED DISORDER

REACTIONS (1)
  - ACUTE CORONARY SYNDROME [None]
